FAERS Safety Report 9762842 (Version 1)
Quarter: 2013Q4

REPORT INFORMATION
  Report Type: Spontaneous
  Country: US (occurrence: US)
  Receive Date: 20131216
  Receipt Date: 20131216
  Transmission Date: 20140711
  Serious: No
  Sender: FDA-Public Use
  Company Number: US-FOUGERA-2012FO001354

PATIENT
  Sex: Male

DRUGS (3)
  1. SOLARAZE [Suspect]
     Indication: ACTINIC KERATOSIS
     Route: 061
     Dates: start: 20121017
  2. ASPIRIN [Concomitant]
     Indication: PRODUCT USED FOR UNKNOWN INDICATION
     Route: 048
  3. IBUPROFEN [Concomitant]
     Indication: PRODUCT USED FOR UNKNOWN INDICATION
     Route: 048

REACTIONS (2)
  - Application site pain [Unknown]
  - Application site exfoliation [Unknown]
